FAERS Safety Report 24572453 (Version 1)
Quarter: 2024Q4

REPORT INFORMATION
  Report Type: Spontaneous
  Country: US (occurrence: US)
  Receive Date: 20241101
  Receipt Date: 20241101
  Transmission Date: 20250115
  Serious: Yes (Other)
  Sender: FERRING
  Company Number: US-FERRINGPH-2024FE06133

PATIENT

DRUGS (1)
  1. ZOMACTON [Suspect]
     Active Substance: SOMATROPIN
     Indication: Product used for unknown indication
     Route: 065

REACTIONS (5)
  - Loss of consciousness [Recovered/Resolved]
  - Memory impairment [Not Recovered/Not Resolved]
  - Feeling abnormal [Unknown]
  - Liquid product physical issue [Unknown]
  - Product reconstitution quality issue [Unknown]

NARRATIVE: CASE EVENT DATE: 20240101
